FAERS Safety Report 7284967-2 (Version None)
Quarter: 2011Q1

REPORT INFORMATION
  Report Type: 
  Country: None (occurrence: None)
  Receive Date: 20110210
  Receipt Date: 20080522
  Transmission Date: 20110831
  Serious: Yes (Other)
  Sender: FDA-Public Use
  Company Number: GB-PFIZER INC-2008045887

PATIENT
  Sex: Female

DRUGS (1)
  1. NICOTINE [Suspect]
     Route: 045
     Dates: start: 20070101

REACTIONS (2)
  - INCORRECT DRUG ADMINISTRATION DURATION [None]
  - DEPENDENCE [None]
